FAERS Safety Report 9059413 (Version 2)
Quarter: 2013Q1

REPORT INFORMATION
  Report Type: Report from Study
  Country: HU (occurrence: HU)
  Receive Date: 20130211
  Receipt Date: 20130325
  Transmission Date: 20140127
  Serious: Yes (Death)
  Sender: FDA-Public Use
  Company Number: HU-GLAXOSMITHKLINE-B0866485A

PATIENT
  Age: 72 None
  Sex: Male

DRUGS (7)
  1. SERETIDE [Suspect]
     Indication: CHRONIC OBSTRUCTIVE PULMONARY DISEASE
     Route: 055
     Dates: start: 2012, end: 2013
  2. NITROMINT RETARD [Concomitant]
     Indication: CARDIAC DISORDER
  3. PANANGIN [Concomitant]
     Indication: CARDIAC DISORDER
  4. SERMION [Concomitant]
     Indication: TREMOR
  5. ASA [Concomitant]
     Indication: COAGULOPATHY
  6. VITAMIN D3 [Concomitant]
  7. SPIRIVA [Concomitant]

REACTIONS (2)
  - Infarction [Fatal]
  - Thrombosis [Fatal]
